FAERS Safety Report 5026288-4 (Version None)
Quarter: 2006Q2

REPORT INFORMATION
  Report Type: 
  Country: None (occurrence: None)
  Receive Date: 20060426
  Receipt Date: 20060121
  Transmission Date: 20061013
  Serious: Yes (Other)
  Sender: FDA-Public Use
  Company Number: 2006011805

PATIENT
  Age: 28 Year
  Sex: Female
  Weight: 63.5036 kg

DRUGS (10)
  1. LYRICA [Suspect]
     Indication: ANKYLOSING SPONDYLITIS
     Dosage: (50 MG), ORAL
     Route: 048
     Dates: start: 20060114
  2. LYRICA [Suspect]
     Indication: FIBROMYALGIA
     Dosage: (50 MG), ORAL
     Route: 048
     Dates: start: 20060114
  3. NEXIUM [Concomitant]
  4. MOBIC [Concomitant]
  5. DETROL [Concomitant]
  6. NYSTATIN [Concomitant]
  7. AMBIEN [Concomitant]
  8. ALLEGRA [Concomitant]
  9. VICODIN [Concomitant]
  10. SKELAXIN [Concomitant]

REACTIONS (7)
  - ANOREXIA [None]
  - BIPOLAR DISORDER [None]
  - EUPHORIC MOOD [None]
  - FEELING ABNORMAL [None]
  - JUDGEMENT IMPAIRED [None]
  - PANIC REACTION [None]
  - POOR QUALITY SLEEP [None]
